FAERS Safety Report 6588930-6 (Version None)
Quarter: 2010Q1

REPORT INFORMATION
  Report Type: 
  Country: None (occurrence: None)
  Receive Date: 20100218
  Receipt Date: 20100211
  Transmission Date: 20100710
  Serious: Yes (Death)
  Sender: FDA-Public Use
  Company Number: AU-GILEAD-E2B_00000559

PATIENT
  Sex: Male

DRUGS (4)
  1. LETAIRIS [Suspect]
     Indication: DRUG USE FOR UNKNOWN INDICATION
     Route: 048
     Dates: start: 20100101
  2. FUROSEMIDE [Concomitant]
  3. OXYGEN [Concomitant]
  4. GLICLAZIDE [Concomitant]

REACTIONS (2)
  - CARDIAC ARREST [None]
  - DEATH [None]
